FAERS Safety Report 17188064 (Version 1)
Quarter: 2019Q4

REPORT INFORMATION
  Report Type: Spontaneous
  Country: BR (occurrence: BR)
  Receive Date: 20191221
  Receipt Date: 20191221
  Transmission Date: 20200122
  Serious: Yes (Other)
  Sender: FDA-Public Use
  Company Number: BR-ACCORD-165546

PATIENT
  Age: 53 Year
  Sex: Male

DRUGS (4)
  1. TACROLIMUS. [Suspect]
     Active Substance: TACROLIMUS
     Indication: IMMUNOSUPPRESSANT DRUG THERAPY
     Dates: start: 201403
  2. SULFAMETHOXAZOLE/TRIMETHOPRIM [Suspect]
     Active Substance: SULFAMETHOXAZOLE\TRIMETHOPRIM
     Indication: PARACOCCIDIOIDES INFECTION
     Dosage: 800/160 MG, TWICE DAILY.
  3. MYCOPHENOLATE MOFETIL/MYCOPHENOLATE SODIUM/MYCOPHENOLIC ACID [Suspect]
     Active Substance: MYCOPHENOLIC ACID
     Indication: IMMUNOSUPPRESSANT DRUG THERAPY
  4. METHYLPREDNISOLONE. [Suspect]
     Active Substance: METHYLPREDNISOLONE
     Indication: IMMUNOSUPPRESSANT DRUG THERAPY

REACTIONS (16)
  - Muscular weakness [Recovered/Resolved]
  - Paracoccidioides infection [Recovered/Resolved]
  - Reticuloendothelial dysfunction [Recovered/Resolved]
  - Inferior vena cava stenosis [Recovered/Resolved]
  - Hyperkalaemia [Recovered/Resolved]
  - Liver disorder [Recovered/Resolved]
  - Adrenal insufficiency [Recovered/Resolved]
  - Arthritis [Recovered/Resolved]
  - Arthropathy [Recovered/Resolved]
  - Osteolysis [Recovered/Resolved]
  - Skin disorder [Recovered/Resolved]
  - Traumatic lung injury [Recovered/Resolved]
  - Hypomagnesaemia [Recovered/Resolved]
  - Renal tubular acidosis [Recovered/Resolved]
  - Subcutaneous abscess [Recovered/Resolved]
  - Ascites [Recovered/Resolved]

NARRATIVE: CASE EVENT DATE: 201409
